FAERS Safety Report 21694127 (Version 3)
Quarter: 2024Q4

REPORT INFORMATION
  Report Type: Report from Study
  Country: US (occurrence: US)
  Receive Date: 20221207
  Receipt Date: 20241021
  Transmission Date: 20250115
  Serious: Yes (Death)
  Sender: DAIICHI
  Company Number: US-DSJP-DSU-2022-144416AA

PATIENT
  Sex: Female

DRUGS (7)
  1. ENHERTU [Suspect]
     Active Substance: FAM-TRASTUZUMAB DERUXTECAN-NXKI
     Indication: Breast cancer metastatic
     Dosage: UNK , ONCE EVERY 3 WK
     Route: 042
     Dates: start: 202210, end: 202210
  2. ENHERTU [Suspect]
     Active Substance: FAM-TRASTUZUMAB DERUXTECAN-NXKI
     Dosage: UNK, ONCE EVERY 3 WK
     Route: 042
     Dates: start: 20221130, end: 20221130
  3. ENHERTU [Suspect]
     Active Substance: FAM-TRASTUZUMAB DERUXTECAN-NXKI
     Dosage: 227 MG, ONCE EVERY 3 WK
     Route: 042
  4. ENHERTU [Suspect]
     Active Substance: FAM-TRASTUZUMAB DERUXTECAN-NXKI
     Dosage: 196 MG, ONCE EVERY 3 WK
     Route: 042
     Dates: start: 20221201, end: 20240730
  5. ENHERTU [Suspect]
     Active Substance: FAM-TRASTUZUMAB DERUXTECAN-NXKI
     Dosage: 221 MG, ONCE EVERY 3 WK
     Route: 042
     Dates: start: 20230524, end: 20230524
  6. ENHERTU [Suspect]
     Active Substance: FAM-TRASTUZUMAB DERUXTECAN-NXKI
     Dosage: 196 MG
     Route: 042
     Dates: start: 20240701, end: 20240701
  7. ENHERTU [Suspect]
     Active Substance: FAM-TRASTUZUMAB DERUXTECAN-NXKI
     Dosage: 220 MG
     Route: 065

REACTIONS (3)
  - Death [Fatal]
  - Dry mouth [Not Recovered/Not Resolved]
  - Therapy change [Not Recovered/Not Resolved]

NARRATIVE: CASE EVENT DATE: 20220101
